FAERS Safety Report 24665580 (Version 2)
Quarter: 2024Q4

REPORT INFORMATION
  Report Type: Spontaneous
  Country: DE (occurrence: DE)
  Receive Date: 20241126
  Receipt Date: 20241204
  Transmission Date: 20250115
  Serious: Yes (Hospitalization, Other)
  Sender: MERCK
  Company Number: DE-009507513-2411DEU007802

PATIENT
  Sex: Female

DRUGS (15)
  1. PEMBROLIZUMAB [Interacting]
     Active Substance: PEMBROLIZUMAB
     Indication: Endometrial cancer
     Dosage: 200 MILLIGRAM, Q3W
     Dates: start: 20240419, end: 20240511
  2. PEMBROLIZUMAB [Interacting]
     Active Substance: PEMBROLIZUMAB
     Dosage: 200 MILLIGRAM, Q3W
     Dates: start: 202406, end: 2024
  3. PEMBROLIZUMAB [Interacting]
     Active Substance: PEMBROLIZUMAB
     Dosage: 200 MILLIGRAM, Q3W
     Dates: start: 20240703, end: 20240724
  4. PEMBROLIZUMAB [Interacting]
     Active Substance: PEMBROLIZUMAB
     Dosage: 400 MILLIGRAM, EVERY 6 WEEKS
     Dates: start: 20240727, end: 202408
  5. LENVATINIB MESYLATE [Interacting]
     Active Substance: LENVATINIB MESYLATE
     Indication: Endometrial cancer
     Dosage: 20 MILLIGRAM DAILY
     Route: 048
     Dates: start: 20240419, end: 20240511
  6. LENVATINIB MESYLATE [Interacting]
     Active Substance: LENVATINIB MESYLATE
     Dosage: 8 MILLIGRAM, QD
     Route: 048
     Dates: start: 202406
  7. LENVATINIB MESYLATE [Interacting]
     Active Substance: LENVATINIB MESYLATE
     Dosage: 8 MILLIGRAM, QD
     Dates: start: 20240703, end: 20240724
  8. LENVATINIB MESYLATE [Interacting]
     Active Substance: LENVATINIB MESYLATE
     Dosage: 8 MILLIGRAM, QD
     Dates: start: 20240727, end: 202408
  9. ISONIAZID [Interacting]
     Active Substance: ISONIAZID
     Indication: Extrapulmonary tuberculosis
     Dosage: TOTAL DAILY DOSE 300 MILLIGRAM
     Dates: start: 2024
  10. ISONIAZID [Interacting]
     Active Substance: ISONIAZID
     Indication: Pulmonary tuberculosis
  11. LEVOTHYROXINE SODIUM [Concomitant]
     Active Substance: LEVOTHYROXINE SODIUM
     Dosage: TOTAL DAILY DOSE 50 MICROGRAM
  12. OMEPRAZOLE [Concomitant]
     Active Substance: OMEPRAZOLE
     Dosage: UNK
  13. OMEPRAZOLE [Concomitant]
     Active Substance: OMEPRAZOLE
     Dosage: UNK
  14. VALSARTAN [Concomitant]
     Active Substance: VALSARTAN
     Dosage: UNK
  15. VALSARTAN [Concomitant]
     Active Substance: VALSARTAN
     Dosage: UNK

REACTIONS (20)
  - Wound infection [Unknown]
  - Impaired healing [Unknown]
  - Vomiting [Unknown]
  - Nausea [Unknown]
  - Hyponatraemia [Unknown]
  - Cholecystitis [Unknown]
  - Intervertebral discitis [Unknown]
  - Bone tuberculosis [Recovering/Resolving]
  - Pulmonary tuberculosis [Recovering/Resolving]
  - Extrapulmonary tuberculosis [Unknown]
  - Drug-induced liver injury [Unknown]
  - Autoimmune hepatitis [Unknown]
  - Liver function test increased [Recovered/Resolved]
  - Gastrointestinal stoma complication [Unknown]
  - Drug interaction [Unknown]
  - Blood bilirubin increased [Recovered/Resolved]
  - Hyponatraemia [Unknown]
  - Infection [Unknown]
  - Inappropriate schedule of product administration [Unknown]
  - Inappropriate schedule of product administration [Unknown]

NARRATIVE: CASE EVENT DATE: 20240501
